FAERS Safety Report 8014457-0 (Version None)
Quarter: 2011Q4

REPORT INFORMATION
  Report Type: 
  Country: None (occurrence: None)
  Receive Date: 20111229
  Receipt Date: 20111221
  Transmission Date: 20120403
  Serious: Yes (Hospitalization)
  Sender: FDA-Public Use
  Company Number: US-BAYER-2011-040449

PATIENT
  Age: 33 Year
  Sex: Female
  Weight: 59 kg

DRUGS (6)
  1. YASMIN [Suspect]
     Indication: ACNE
     Dosage: UNK
     Route: 048
     Dates: start: 20060101, end: 20080101
  2. YASMIN [Suspect]
  3. SYNTHROID [Concomitant]
  4. CELEXA [Concomitant]
  5. YASMIN [Suspect]
     Indication: CONTRACEPTION
  6. YASMIN [Suspect]
     Indication: PREMENSTRUAL SYNDROME

REACTIONS (4)
  - CHOLELITHIASIS [None]
  - ABDOMINAL PAIN [None]
  - PAIN [None]
  - CHOLECYSTITIS CHRONIC [None]
